FAERS Safety Report 4433276-5 (Version None)
Quarter: 2004Q3

REPORT INFORMATION
  Report Type: 
  Country: None (occurrence: None)
  Receive Date: 20040824
  Receipt Date: 20040810
  Transmission Date: 20050211
  Serious: Yes (Life-Threatening, Hospitalization)
  Sender: FDA-Public Use
  Company Number: CERZ-10633

PATIENT
  Age: 22 Year
  Sex: Female

DRUGS (2)
  1. CEREZYME [Suspect]
     Indication: GAUCHER'S DISEASE
     Dosage: 4600 UNITS Q2WKS IV
     Route: 042
     Dates: start: 20031222, end: 20040401
  2. CEREZYME [Suspect]
     Indication: GAUCHER'S DISEASE
     Dates: start: 19980801, end: 20031031

REACTIONS (11)
  - ABORTION SPONTANEOUS [None]
  - ANAEMIA [None]
  - DRUG EXPOSURE DURING PREGNANCY [None]
  - ECTOPIC PREGNANCY [None]
  - LOSS OF CONSCIOUSNESS [None]
  - OXYGEN SATURATION DECREASED [None]
  - PLATELET COUNT DECREASED [None]
  - POST PROCEDURAL COMPLICATION [None]
  - PYREXIA [None]
  - TREATMENT NONCOMPLIANCE [None]
  - WEIGHT INCREASED [None]
